FAERS Safety Report 11182077 (Version 2)
Quarter: 2015Q2

REPORT INFORMATION
  Report Type: Spontaneous
  Country: CH (occurrence: IN)
  Receive Date: 20150611
  Receipt Date: 20150624
  Transmission Date: 20150821
  Serious: No
  Sender: FDA-Public Use
  Company Number: CH-LPDUSPRD-20150422

PATIENT
  Age: 38 Year
  Sex: Female

DRUGS (3)
  1. FLUOXETINE [Concomitant]
     Active Substance: FLUOXETINE\FLUOXETINE HYDROCHLORIDE
     Dosage: DOSE NOT PROVIDED
     Route: 065
  2. CLONAZEPAM. [Concomitant]
     Active Substance: CLONAZEPAM
     Dosage: DOSE NOT PROVIDED
     Route: 065
  3. FERINJECT [Suspect]
     Active Substance: FERRIC CARBOXYMALTOSE
     Dosage: 500 MG, 2 TOTAL
     Route: 041
     Dates: start: 20150520, end: 20150526

REACTIONS (3)
  - Vomiting [Recovered/Resolved]
  - Muscular weakness [Not Recovered/Not Resolved]
  - Chest discomfort [Unknown]

NARRATIVE: CASE EVENT DATE: 20150526
